FAERS Safety Report 9263954 (Version 2)
Quarter: 2016Q1

REPORT INFORMATION
  Report Type: Spontaneous
  Country: IN (occurrence: IN)
  Receive Date: 20130430
  Receipt Date: 20160210
  Transmission Date: 20160526
  Serious: Yes (Death, Other)
  Sender: FDA-Public Use
  Company Number: IN-BRISTOL-MYERS SQUIBB COMPANY-18832121

PATIENT
  Sex: Male
  Weight: .32 kg

DRUGS (1)
  1. METFORMIN HYDROCHLORIDE. [Suspect]
     Active Substance: METFORMIN HYDROCHLORIDE
     Indication: PRODUCT USED FOR UNKNOWN INDICATION
     Dosage: UNK
     Route: 064

REACTIONS (10)
  - Vitello-intestinal duct remnant [Fatal]
  - Foetal exposure during pregnancy [Unknown]
  - Spinal disorder [Unknown]
  - Congenital genitourinary abnormality [Fatal]
  - Abdominal wall anomaly [Unknown]
  - Umbilical malformation [Fatal]
  - Urachal abnormality [Fatal]
  - Talipes [Fatal]
  - Clinodactyly [Fatal]
  - Foetal growth restriction [Unknown]
